FAERS Safety Report 7507274-9 (Version None)
Quarter: 2011Q2

REPORT INFORMATION
  Report Type: 
  Country: None (occurrence: None)
  Receive Date: 20110526
  Receipt Date: 20110519
  Transmission Date: 20111010
  Serious: Yes (Hospitalization)
  Sender: FDA-Public Use
  Company Number: US-AMGEN-USACT2011021802

PATIENT
  Age: 57 Year
  Sex: Female

DRUGS (5)
  1. CYCLOPHOSPHAMIDE [Concomitant]
     Indication: BREAST CANCER
     Dosage: 600 MG/M2, UNK
     Route: 042
     Dates: start: 20101229, end: 20101229
  2. PEGFILGRASTIM [Suspect]
     Indication: BREAST CANCER
     Dosage: 6 MG, UNK
     Route: 058
     Dates: start: 20101229, end: 20101230
  3. DOXORUBICIN HCL [Concomitant]
     Indication: BREAST CANCER
     Dosage: 60 MG/M2, UNK
     Route: 042
     Dates: start: 20101229, end: 20101229
  4. BEVACIZUMAB [Concomitant]
     Indication: BREAST CANCER
     Dosage: 10 MG/KG, UNK
     Route: 042
     Dates: start: 20101229, end: 20101229
  5. PACLITAXEL [Concomitant]
     Indication: BREAST CANCER
     Dosage: 80 MG/M2, UNK
     Route: 042
     Dates: start: 20101229

REACTIONS (5)
  - NAUSEA [None]
  - ANASTOMOTIC LEAK [None]
  - ABDOMINAL PAIN [None]
  - WOUND COMPLICATION [None]
  - VOMITING [None]
